FAERS Safety Report 15568514 (Version 1)
Quarter: 2018Q4

REPORT INFORMATION
  Report Type: Report from Study
  Country: CN (occurrence: CN)
  Receive Date: 20181031
  Receipt Date: 20181031
  Transmission Date: 20190205
  Serious: Yes (Other)
  Sender: FDA-Public Use
  Company Number: CN-ROCHE-2206406

PATIENT

DRUGS (6)
  1. VINCRISTINE [Suspect]
     Active Substance: VINCRISTINE
     Indication: NON-HODGKIN^S LYMPHOMA
     Dosage: ON DAY1
     Route: 040
  2. PREDNISONE. [Suspect]
     Active Substance: PREDNISONE
     Indication: NON-HODGKIN^S LYMPHOMA
     Route: 040
  3. CYCLOPHOSPHAMIDE. [Suspect]
     Active Substance: CYCLOPHOSPHAMIDE
     Indication: NON-HODGKIN^S LYMPHOMA
     Dosage: ON DAY1
     Route: 040
  4. PREDNISONE. [Suspect]
     Active Substance: PREDNISONE
     Dosage: FROM DAY1 TO DAY5
     Route: 048
  5. RITUXIMAB. [Suspect]
     Active Substance: RITUXIMAB
     Indication: NON-HODGKIN^S LYMPHOMA
     Route: 041
  6. DOXORUBICIN [Suspect]
     Active Substance: DOXORUBICIN
     Indication: NON-HODGKIN^S LYMPHOMA
     Dosage: ON DAY1
     Route: 040

REACTIONS (7)
  - Gastrointestinal disorder [Unknown]
  - Stomatitis [Unknown]
  - Thrombosis [Unknown]
  - Arrhythmia [Unknown]
  - Nosocomial infection [Unknown]
  - Transfusion reaction [Unknown]
  - Respiratory depression [Unknown]
